FAERS Safety Report 8955030 (Version 1)
Quarter: 2012Q4

REPORT INFORMATION
  Report Type: Spontaneous
  Country: DK (occurrence: None)
  Receive Date: 20121130
  Receipt Date: 20121130
  Transmission Date: 20130627
  Serious: Yes (Hospitalization)
  Sender: FDA-Public Use
  Company Number: 2012MA013646

PATIENT
  Age: 23 Year
  Sex: Female

DRUGS (2)
  1. ALPRAZOLAM [Suspect]
     Indication: OVERDOSE
     Route: 048
     Dates: start: 20121105, end: 20121105
  2. PAROXETINE (PAROXETINE) [Suspect]
     Route: 048
     Dates: start: 20121105, end: 20121105

REACTIONS (5)
  - Depression [None]
  - Intentional drug misuse [None]
  - Overdose [None]
  - Substance abuse [None]
  - Blood lactate dehydrogenase increased [None]
